FAERS Safety Report 7345462-5 (Version None)
Quarter: 2011Q1

REPORT INFORMATION
  Report Type: 
  Country: None (occurrence: None)
  Receive Date: 20110310
  Receipt Date: 20110304
  Transmission Date: 20110831
  Serious: Yes (Hospitalization)
  Sender: FDA-Public Use
  Company Number: US-GILEAD-2010-0034685

PATIENT
  Sex: Female

DRUGS (18)
  1. ALBUTEROL SULFATE [Concomitant]
  2. FUROSEMIDE [Concomitant]
  3. OXYGEN [Concomitant]
  4. LETAIRIS [Suspect]
     Indication: PULMONARY HYPERTENSION
     Route: 048
     Dates: start: 20100611, end: 20101221
  5. REVATIO [Concomitant]
  6. METOPROLOL TARTRATE [Concomitant]
     Indication: HYPERTENSION
  7. PLAQUENIL [Concomitant]
  8. PHENYTOIN SODIUM [Concomitant]
  9. COMBIVENT [Concomitant]
  10. ADVAIR DISKUS 100/50 [Concomitant]
  11. PREDNISONE [Concomitant]
  12. OXYCODONE HCL [Concomitant]
     Indication: PAIN
  13. MUCINEX DM [Concomitant]
  14. SERTRALINE [Concomitant]
  15. WARFARIN [Concomitant]
  16. OMEPRAZOLE [Concomitant]
  17. SEROQUEL [Concomitant]
  18. K-DUR [Concomitant]

REACTIONS (1)
  - LIVER FUNCTION TEST ABNORMAL [None]
